FAERS Safety Report 9155321 (Version 1)
Quarter: 2013Q1

REPORT INFORMATION
  Report Type: Spontaneous
  Country: IT (occurrence: None)
  Receive Date: 20130206
  Receipt Date: 20130206
  Transmission Date: 20140127
  Serious: Yes (Other)
  Sender: FDA-Public Use
  Company Number: 1584833

PATIENT
  Age: 63 Year
  Sex: Female
  Weight: 63 kg

DRUGS (2)
  1. PACLITAXEL (PACLITAXEL) [Suspect]
     Indication: OVARIAN CANCER
     Dosage: CYC
     Route: 042
     Dates: start: 20110914, end: 20111228
  2. CARBOPLATIN [Concomitant]

REACTIONS (4)
  - Feeling hot [None]
  - Throat tightness [None]
  - Agitation [None]
  - Erythema [None]
